FAERS Safety Report 6203985-6 (Version None)
Quarter: 2009Q2

REPORT INFORMATION
  Report Type: 
  Country: None (occurrence: None)
  Receive Date: 20090527
  Receipt Date: 20090520
  Transmission Date: 20091009
  Serious: Yes (Other)
  Sender: FDA-Public Use
  Company Number: D0061716A

PATIENT

DRUGS (1)
  1. FORTUM [Suspect]
     Route: 065

REACTIONS (2)
  - ANAPHYLACTIC REACTION [None]
  - MALAISE [None]
